FAERS Safety Report 6885423-3 (Version None)
Quarter: 2010Q3

REPORT INFORMATION
  Report Type: 
  Country: None (occurrence: None)
  Receive Date: 20100729
  Receipt Date: 20080424
  Transmission Date: 20110219
  Serious: Yes (Other)
  Sender: FDA-Public Use
  Company Number: US-PFIZER INC-2008019092

PATIENT
  Sex: Female
  Weight: 47.6 kg

DRUGS (11)
  1. CELEBREX [Suspect]
     Indication: PAIN
     Route: 048
     Dates: start: 20080228
  2. CELEBREX [Suspect]
     Indication: HERPES ZOSTER
  3. CELEBREX [Suspect]
     Indication: OSTEOARTHRITIS
  4. FUROSEMIDE [Concomitant]
  5. VALSARTAN [Concomitant]
  6. ALL OTHER THERAPEUTIC PRODUCTS [Concomitant]
  7. ISOSORBIDE [Concomitant]
  8. DIGOXIN [Concomitant]
  9. GABAPENTIN [Concomitant]
  10. CRESTOR [Concomitant]
  11. METOPROLOL TARTRATE [Concomitant]

REACTIONS (7)
  - ABDOMINAL DISCOMFORT [None]
  - DYSPNOEA [None]
  - FEELING HOT [None]
  - HEADACHE [None]
  - INSOMNIA [None]
  - NASOPHARYNGITIS [None]
  - RHINORRHOEA [None]
